FAERS Safety Report 6766147-X (Version None)
Quarter: 2010Q2

REPORT INFORMATION
  Report Type: 
  Country: None (occurrence: None)
  Receive Date: 20100611
  Receipt Date: 20100602
  Transmission Date: 20101027
  Serious: Yes (Hospitalization)
  Sender: FDA-Public Use
  Company Number: US-ASTRAZENECA-2010SE25623

PATIENT
  Sex: Female

DRUGS (2)
  1. CASODEX [Suspect]
     Route: 048
  2. KAPIDEX [Suspect]

REACTIONS (2)
  - DRUG DISPENSING ERROR [None]
  - ILL-DEFINED DISORDER [None]
